FAERS Safety Report 5230852-7 (Version None)
Quarter: 2007Q1

REPORT INFORMATION
  Report Type: 
  Country: None (occurrence: None)
  Receive Date: 20070206
  Receipt Date: 20070125
  Transmission Date: 20070707
  Serious: Yes (Hospitalization)
  Sender: FDA-Public Use
  Company Number: DE-BAYER-200611460BVD

PATIENT
  Sex: Female

DRUGS (2)
  1. MOXIFLOXACIN HCL [Suspect]
     Indication: PNEUMONIA
     Route: 065
  2. CORTISONE ACETATE [Concomitant]

REACTIONS (3)
  - EOSINOPHILIA [None]
  - NECROTISING FASCIITIS [None]
  - THROMBOCYTOPENIA [None]
